FAERS Safety Report 5322766-9 (Version None)
Quarter: 2007Q2

REPORT INFORMATION
  Report Type: 
  Country: None (occurrence: None)
  Receive Date: 20070223
  Receipt Date: 20061212
  Transmission Date: 20071010
  Serious: Yes (Hospitalization)
  Sender: FDA-Public Use
  Company Number: 06P-163-0353175-00

PATIENT
  Age: 42 Year
  Sex: Female

DRUGS (4)
  1. TRICOR [Suspect]
     Indication: DRUG USE FOR UNKNOWN INDICATION
  2. LISINOPRIL [Suspect]
     Indication: DRUG USE FOR UNKNOWN INDICATION
  3. INTERFERON BETA [Concomitant]
  4. ESTROGEN NOS [Concomitant]

REACTIONS (1)
  - PANCREATITIS [None]
